FAERS Safety Report 5657296-8 (Version None)
Quarter: 2008Q1

REPORT INFORMATION
  Report Type: 
  Country: None (occurrence: None)
  Receive Date: 20080310
  Receipt Date: 20080227
  Transmission Date: 20080703
  Serious: Yes (Other)
  Sender: FDA-Public Use
  Company Number: GB-PFIZER INC-2008012893

PATIENT
  Age: 54 Year
  Sex: Female

DRUGS (5)
  1. CABERGOLINE [Suspect]
     Indication: PARKINSON'S DISEASE
     Route: 048
     Dates: start: 20011001, end: 20070801
  2. REQUIP [Suspect]
     Indication: PARKINSON'S DISEASE
     Route: 048
  3. SINEMET [Concomitant]
     Route: 048
  4. SINEMET CR [Concomitant]
     Route: 048
     Dates: start: 20010101
  5. ZELAPAR [Concomitant]
     Route: 048
     Dates: start: 20040901

REACTIONS (5)
  - AORTIC VALVE INCOMPETENCE [None]
  - CONDITION AGGRAVATED [None]
  - HEART VALVE INCOMPETENCE [None]
  - LEFT ATRIAL DILATATION [None]
  - MITRAL VALVE INCOMPETENCE [None]
